FAERS Safety Report 13195173 (Version 1)
Quarter: 2017Q1

REPORT INFORMATION
  Report Type: Spontaneous
  Country: DE (occurrence: DE)
  Receive Date: 20170208
  Receipt Date: 20170208
  Transmission Date: 20170428
  Serious: Yes (Other)
  Sender: FDA-Public Use
  Company Number: DE-BIOGEN-2017BI00354131

PATIENT
  Sex: Female

DRUGS (1)
  1. TYSABRI [Suspect]
     Active Substance: NATALIZUMAB
     Indication: RELAPSING-REMITTING MULTIPLE SCLEROSIS
     Dosage: INFUSED OVER 1 HR
     Route: 065
     Dates: start: 20100517

REACTIONS (2)
  - Abortion spontaneous [Recovered/Resolved]
  - Exposure via father [Recovered/Resolved]

NARRATIVE: CASE EVENT DATE: 201607
